FAERS Safety Report 20400522 (Version 1)
Quarter: 2022Q1

REPORT INFORMATION
  Report Type: Report from Study
  Country: US (occurrence: US)
  Receive Date: 20220131
  Receipt Date: 20220131
  Transmission Date: 20220423
  Serious: No
  Sender: FDA-Public Use
  Company Number: US-BIOVITRUM-2022US01137

PATIENT
  Sex: Female

DRUGS (7)
  1. SYNAGIS [Suspect]
     Active Substance: PALIVIZUMAB
     Indication: Antiviral prophylaxis
     Dosage: 50MG/0.5ML
     Route: 030
  2. ASPIRIN [Concomitant]
     Active Substance: ASPIRIN
  3. SPIRONOLACTONE [Concomitant]
     Active Substance: SPIRONOLACTONE
  4. ACETAMINOPHEN [Concomitant]
     Active Substance: ACETAMINOPHEN
  5. VITAMIN C [Concomitant]
     Active Substance: ASCORBIC ACID
  6. CHILDRENS LASIX [Concomitant]
  7. DIGOXIN [Concomitant]
     Active Substance: DIGOXIN

REACTIONS (2)
  - Nasopharyngitis [Unknown]
  - Pyrexia [Unknown]
